FAERS Safety Report 17222862 (Version 2)
Quarter: 2020Q1

REPORT INFORMATION
  Report Type: Spontaneous
  Country: US (occurrence: US)
  Receive Date: 20200102
  Receipt Date: 20200121
  Transmission Date: 20200409
  Serious: Yes (Other)
  Sender: FDA-Public Use
  Company Number: US-ASTRAZENECA-2019SF75416

PATIENT
  Sex: Male

DRUGS (8)
  1. JARDIANCE [Concomitant]
     Active Substance: EMPAGLIFLOZIN
  2. AMLODIPINE [Concomitant]
     Active Substance: AMLODIPINE BESYLATE
  3. METFORMIN [Concomitant]
     Active Substance: METFORMIN HYDROCHLORIDE
  4. ATORVASTATIN [Concomitant]
     Active Substance: ATORVASTATIN
  5. BYDUREON BCISE [Suspect]
     Active Substance: EXENATIDE
     Indication: DIABETES MELLITUS
     Dosage: UNKNOWN
     Route: 065
  6. BYDUREON [Suspect]
     Active Substance: EXENATIDE
     Route: 058
     Dates: start: 2018
  7. TOUJEO [Concomitant]
     Active Substance: INSULIN GLARGINE
  8. LOSARTEN [Concomitant]
     Active Substance: LOSARTAN

REACTIONS (5)
  - Device use issue [Unknown]
  - Injection site haemorrhage [Unknown]
  - Blood glucose increased [Unknown]
  - Product dose omission [Unknown]
  - Device issue [Unknown]
